FAERS Safety Report 16827587 (Version 1)
Quarter: 2019Q3

REPORT INFORMATION
  Report Type: Spontaneous
  Country: FR (occurrence: FR)
  Receive Date: 20190919
  Receipt Date: 20190919
  Transmission Date: 20191005
  Serious: Yes (Other)
  Sender: FDA-Public Use
  Company Number: FR-ROCHE-2409390

PATIENT
  Age: 27 Year
  Sex: Female
  Weight: 57 kg

DRUGS (1)
  1. OCREVUS [Suspect]
     Active Substance: OCRELIZUMAB
     Indication: RELAPSING-REMITTING MULTIPLE SCLEROSIS
     Dosage: 2 INJECTIONS
     Route: 041
     Dates: start: 20190417, end: 20190502

REACTIONS (1)
  - Transaminases increased [Recovered/Resolved]

NARRATIVE: CASE EVENT DATE: 20190506
